FAERS Safety Report 7006233-2 (Version None)
Quarter: 2010Q3

REPORT INFORMATION
  Report Type: 
  Country: None (occurrence: None)
  Receive Date: 20100921
  Receipt Date: 20100916
  Transmission Date: 20110219
  Serious: No
  Sender: FDA-Public Use
  Company Number: US-PFIZER INC-2010113314

PATIENT
  Age: 78 Year
  Sex: Female

DRUGS (2)
  1. NORVASC [Suspect]
     Dosage: UNK
  2. ANTIVERT [Suspect]
     Dosage: UNK

REACTIONS (3)
  - HYPERSENSITIVITY [None]
  - JOINT SWELLING [None]
  - RASH [None]
